FAERS Safety Report 17238237 (Version 4)
Quarter: 2020Q1

REPORT INFORMATION
  Report Type: Spontaneous
  Country: US (occurrence: US)
  Receive Date: 20200106
  Receipt Date: 20200219
  Transmission Date: 20200409
  Serious: No
  Sender: FDA-Public Use
  Company Number: US-SHIRE-US201945667

PATIENT
  Age: 16 Year
  Sex: Female
  Weight: 48.53 kg

DRUGS (2)
  1. INTUNIV [Suspect]
     Active Substance: GUANFACINE HYDROCHLORIDE
     Dosage: 1 MILLIGRAM, 1X/DAY:QD
     Route: 065
  2. INTUNIV [Suspect]
     Active Substance: GUANFACINE HYDROCHLORIDE
     Indication: ATTENTION DEFICIT/HYPERACTIVITY DISORDER
     Dosage: 2 MILLIGRAM, 1X/DAY:QD
     Route: 065

REACTIONS (9)
  - Rhinorrhoea [Unknown]
  - Product physical issue [Unknown]
  - Crying [Unknown]
  - Malaise [Unknown]
  - Somnolence [Unknown]
  - Nasopharyngitis [Unknown]
  - Asthenia [Unknown]
  - Mood altered [Unknown]
  - Selective mutism [Unknown]

NARRATIVE: CASE EVENT DATE: 20191219
